FAERS Safety Report 20932288 (Version 1)
Quarter: 2022Q2

REPORT INFORMATION
  Report Type: Spontaneous
  Country: US (occurrence: None)
  Receive Date: 20220608
  Receipt Date: 20220608
  Transmission Date: 20220720
  Serious: No
  Sender: FDA-Public Use
  Company Number: US-ROCHE-2885384

PATIENT
  Age: 69 Year
  Sex: Female
  Weight: 72.640 kg

DRUGS (2)
  1. ACTEMRA [Suspect]
     Active Substance: TOCILIZUMAB
     Indication: Rheumatoid arthritis
     Dosage: EVERY FOUR WEEKS ;ONGOING: YES
     Route: 042
     Dates: start: 20210528
  2. ACTEMRA [Suspect]
     Active Substance: TOCILIZUMAB
     Dosage: YES
     Route: 042
     Dates: start: 20210628

REACTIONS (2)
  - Swelling [Unknown]
  - Swelling [Unknown]

NARRATIVE: CASE EVENT DATE: 20210621
